FAERS Safety Report 9461257 (Version 1)
Quarter: 2013Q3

REPORT INFORMATION
  Report Type: Spontaneous
  Country: US (occurrence: US)
  Receive Date: 20130816
  Receipt Date: 20130816
  Transmission Date: 20140515
  Serious: No
  Sender: FDA-Public Use
  Company Number: US-PFIZER INC-2013235961

PATIENT
  Age: 71 Year
  Sex: Female
  Weight: 88.44 kg

DRUGS (5)
  1. ADVIL PM [Suspect]
     Indication: BACK PAIN
     Dosage: 76/400 MG, ONCE A DAY
     Route: 048
     Dates: start: 201308, end: 201308
  2. ADVIL PM [Suspect]
     Indication: ARTHRALGIA
  3. ADVIL PM [Suspect]
     Indication: SLEEP DISORDER
  4. PRILOSEC [Concomitant]
     Indication: DYSPEPSIA
     Dosage: UNK
  5. ATIVAN [Concomitant]
     Indication: ANXIETY
     Dosage: UNK

REACTIONS (2)
  - Abdominal discomfort [Recovered/Resolved]
  - Nausea [Recovered/Resolved]
